FAERS Safety Report 8372020-6 (Version None)
Quarter: 2012Q2

REPORT INFORMATION
  Report Type: 
  Country: None (occurrence: None)
  Receive Date: 20120518
  Receipt Date: 20120502
  Transmission Date: 20120825
  Serious: Yes (Other)
  Sender: FDA-Public Use
  Company Number: CHPA2012US010477

PATIENT
  Sex: Male

DRUGS (1)
  1. EXCEDRIN (MIGRAINE) [Suspect]
     Indication: HEADACHE
     Dosage: 4 TO 6 PER DAY
     Route: 048

REACTIONS (14)
  - OVERDOSE [None]
  - DYSURIA [None]
  - STOMATITIS [None]
  - OROPHARYNGEAL PAIN [None]
  - PAPULE [None]
  - UPPER RESPIRATORY TRACT CONGESTION [None]
  - DIZZINESS [None]
  - BLEPHAROSPASM [None]
  - MALAISE [None]
  - HOT FLUSH [None]
  - ORAL PAIN [None]
  - THROAT IRRITATION [None]
  - VISION BLURRED [None]
  - GLOSSODYNIA [None]
